FAERS Safety Report 25746956 (Version 2)
Quarter: 2025Q4

REPORT INFORMATION
  Report Type: Spontaneous
  Country: US (occurrence: US)
  Receive Date: 20250901
  Receipt Date: 20251112
  Transmission Date: 20260117
  Serious: No
  Sender: SANOFI AVENTIS
  Company Number: US-SA-2025SA260200

PATIENT
  Age: 10 Year
  Sex: Female

DRUGS (1)
  1. DUPIXENT [Suspect]
     Active Substance: DUPILUMAB
     Indication: Dermatitis atopic
     Dosage: 200 MG, QOW
     Route: 058
     Dates: start: 202509

REACTIONS (3)
  - Injection site urticaria [Unknown]
  - Dry skin [Not Recovered/Not Resolved]
  - Injection site reaction [Unknown]

NARRATIVE: CASE EVENT DATE: 20250101
